FAERS Safety Report 9442883 (Version 1)
Quarter: 2013Q3

REPORT INFORMATION
  Report Type: Spontaneous
  Country: US (occurrence: None)
  Receive Date: 20130805
  Receipt Date: 20130805
  Transmission Date: 20140515
  Serious: Yes (Hospitalization)
  Sender: FDA-Public Use
  Company Number: None

PATIENT
  Age: 54 Year
  Sex: Male
  Weight: 88.45 kg

DRUGS (2)
  1. WARFARIN [Suspect]
     Indication: DEEP VEIN THROMBOSIS
     Route: 048
  2. WARFARIN [Suspect]

REACTIONS (1)
  - International normalised ratio increased [None]
